FAERS Safety Report 6506016-3 (Version None)
Quarter: 2009Q4

REPORT INFORMATION
  Report Type: 
  Country: None (occurrence: None)
  Receive Date: 20091218
  Receipt Date: 20091208
  Transmission Date: 20100525
  Serious: Yes (Other)
  Sender: FDA-Public Use
  Company Number: US-WYE-H10917409

PATIENT
  Sex: Female

DRUGS (2)
  1. PRISTIQ [Suspect]
     Indication: MAJOR DEPRESSION
     Dosage: UNKNOWN, WITHDRAWN TEMPORARILY FOR SUGERY
     Route: 048
  2. PRISTIQ [Suspect]
     Dosage: RESTARTED PATIENT'S HOME DOSE OF PRISTIQ

REACTIONS (2)
  - DRUG WITHDRAWAL SYNDROME [None]
  - TACHYCARDIA [None]
